FAERS Safety Report 14955244 (Version 1)
Quarter: 2018Q2

REPORT INFORMATION
  Report Type: Spontaneous
  Country: JP (occurrence: JP)
  Receive Date: 20180531
  Receipt Date: 20180531
  Transmission Date: 20180711
  Serious: Yes (Other)
  Sender: FDA-Public Use
  Company Number: JP-SUN PHARMACEUTICAL INDUSTRIES LTD-2018RR-174213

PATIENT
  Age: 46 Year
  Sex: Male

DRUGS (5)
  1. VALPROIC ACID. [Suspect]
     Active Substance: VALPROIC ACID
     Indication: PRODUCT USED FOR UNKNOWN INDICATION
     Dosage: UNK
     Route: 065
  2. FOSPHENYTOIN [Suspect]
     Active Substance: FOSPHENYTOIN\FOSPHENYTOIN SODIUM
     Indication: SEIZURE
     Dosage: UNK
     Route: 065
  3. DIAZEPAM. [Suspect]
     Active Substance: DIAZEPAM
     Indication: SEIZURE
     Dosage: UNK
     Route: 065
  4. EDARAVONE [Suspect]
     Active Substance: EDARAVONE
     Indication: INFARCTION
     Dosage: UNK
     Route: 065
  5. ARGATROBAN. [Suspect]
     Active Substance: ARGATROBAN
     Indication: INFARCTION
     Dosage: UNK
     Route: 065

REACTIONS (2)
  - Nephropathy [Unknown]
  - Treatment noncompliance [Unknown]
